FAERS Safety Report 8351460-5 (Version None)
Quarter: 2012Q2

REPORT INFORMATION
  Report Type: 
  Country: None (occurrence: None)
  Receive Date: 20120510
  Receipt Date: 20120426
  Transmission Date: 20120825
  Serious: Yes (Hospitalization)
  Sender: FDA-Public Use
  Company Number: RO-ROCHE-1066375

PATIENT
  Sex: Female
  Weight: 60 kg

DRUGS (9)
  1. COPEGUS [Suspect]
     Indication: HEPATITIS C
     Dosage: 5 EP/DAY
     Route: 048
     Dates: start: 20110811, end: 20111107
  2. FENOFIBRATE [Concomitant]
     Dates: start: 20111109, end: 20111110
  3. PEGASYS [Suspect]
     Indication: HEPATITIS C
     Route: 058
     Dates: start: 20110811, end: 20111111
  4. OMEPRAZOLE [Concomitant]
     Dates: start: 20111003, end: 20111110
  5. EUTHYROX [Concomitant]
     Dates: start: 20111109, end: 20111110
  6. FENOFIBRATE [Concomitant]
     Dates: start: 20111109, end: 20111110
  7. COPEGUS [Suspect]
     Dosage: 3 EP/DAY
     Route: 048
     Dates: start: 20111107, end: 20111111
  8. APROVEL [Concomitant]
     Dates: start: 20110908, end: 20111111
  9. BLINDED ALISPORIVIR [Suspect]
     Indication: HEPATITIS C
     Route: 048
     Dates: start: 20110811, end: 20111111

REACTIONS (2)
  - HYPERAMYLASAEMIA [None]
  - HYPERLIPASAEMIA [None]
